FAERS Safety Report 9010986 (Version 1)
Quarter: 2013Q1

REPORT INFORMATION
  Report Type: Spontaneous
  Country: US (occurrence: US)
  Receive Date: 20130109
  Receipt Date: 20130109
  Transmission Date: 20140127
  Serious: Yes (Other)
  Sender: FDA-Public Use
  Company Number: US-009507513-1301USA001562

PATIENT
  Age: 74 Year
  Sex: Female

DRUGS (4)
  1. MONTELUKAST SODIUM [Suspect]
     Indication: DIABETES MELLITUS
     Dosage: 10 MG, QD
  2. STARSIS [Suspect]
     Dosage: 270 MG, QD
     Route: 048
  3. CIBENOL [Concomitant]
     Dosage: 200 MG, QD
  4. NU-LOTAN [Concomitant]
     Dosage: 25 MG, QD

REACTIONS (2)
  - Alanine aminotransferase increased [Unknown]
  - Hepatic function abnormal [Unknown]
